FAERS Safety Report 6119701-2 (Version None)
Quarter: 2009Q1

REPORT INFORMATION
  Report Type: 
  Country: None (occurrence: None)
  Receive Date: 20090316
  Receipt Date: 20090302
  Transmission Date: 20090719
  Serious: Yes (Other)
  Sender: FDA-Public Use
  Company Number: US-PFIZER INC-2008045044

PATIENT
  Sex: Female
  Weight: 117.93 kg

DRUGS (9)
  1. CHANTIX [Suspect]
     Indication: SMOKING CESSATION THERAPY
     Dosage: UNK
     Route: 048
     Dates: start: 20080510, end: 20080601
  2. DRUG, UNSPECIFIED [Suspect]
     Indication: ARTHRITIS
     Dates: end: 20080101
  3. ANALGESICS [Concomitant]
  4. LITHIUM CARBONATE [Concomitant]
  5. GABAPENTIN [Concomitant]
  6. VICODIN [Concomitant]
  7. MORPHINE [Concomitant]
  8. OTHER RESPIRATORY SYSTEM PRODUCTS [Concomitant]
  9. ALL OTHER THERAPEUTIC PRODUCTS [Concomitant]
     Dosage: UNK

REACTIONS (11)
  - ABASIA [None]
  - AGGRESSION [None]
  - AMNESIA [None]
  - CARDIAC DISORDER [None]
  - DEPRESSION [None]
  - DYSPNOEA [None]
  - HOMICIDAL IDEATION [None]
  - INFLUENZA LIKE ILLNESS [None]
  - MYOCARDIAL INFARCTION [None]
  - SWELLING [None]
  - WEIGHT INCREASED [None]
